FAERS Safety Report 8789703 (Version 1)
Quarter: 2012Q4

REPORT INFORMATION
  Report Type: Spontaneous
  Country: US (occurrence: None)
  Receive Date: 20120911
  Receipt Date: 20120911
  Transmission Date: 20130627
  Serious: Yes (Other)
  Sender: FDA-Public Use
  Company Number: None

PATIENT
  Age: 61 Year
  Sex: Male
  Weight: 71.6 kg

DRUGS (2)
  1. PEGINTERFERON [Suspect]
     Indication: HEPATITIS C
     Dosage: 0.5 ml qweek sq
     Route: 058
     Dates: start: 20120126
  2. RIBAVIRIN [Suspect]
     Route: 048
     Dates: start: 20120126

REACTIONS (1)
  - Deafness unilateral [None]
